FAERS Safety Report 5533245-8 (Version None)
Quarter: 2007Q4

REPORT INFORMATION
  Report Type: 
  Country: None (occurrence: None)
  Receive Date: 20071204
  Receipt Date: 20071126
  Transmission Date: 20080405
  Serious: Yes (Hospitalization)
  Sender: FDA-Public Use
  Company Number: A0696632A

PATIENT
  Age: 72 Year
  Sex: Female
  Weight: 60.1 kg

DRUGS (7)
  1. LAPATINIB [Suspect]
     Dosage: 1000MG PER DAY
     Route: 048
     Dates: start: 20071026
  2. PACLITAXEL [Suspect]
     Dosage: 80MGM2 CYCLIC
     Route: 042
     Dates: start: 20071026
  3. TRASTUZUMAB [Suspect]
     Dosage: 4MGK WEEKLY
     Route: 042
     Dates: start: 20071026
  4. ALPRAZOLAM [Concomitant]
     Indication: ANXIETY
     Dosage: .25MG FOUR TIMES PER DAY
     Route: 048
     Dates: start: 20070901
  5. DIOVAN [Concomitant]
     Indication: HYPERTENSION
     Dosage: 80MG PER DAY
     Route: 048
     Dates: start: 20061001
  6. HYDROCHLOROTHIAZIDE [Concomitant]
     Indication: HYPERTENSION
     Dosage: 25MG PER DAY
     Route: 048
     Dates: start: 20061001
  7. KLOR-CON [Concomitant]
     Dosage: 10MG PER DAY
     Route: 048
     Dates: start: 20061001

REACTIONS (7)
  - ASTHENIA [None]
  - DEHYDRATION [None]
  - DIARRHOEA [None]
  - EATING DISORDER [None]
  - FATIGUE [None]
  - INFECTION [None]
  - RENAL FAILURE [None]
